FAERS Safety Report 23124186 (Version 1)
Quarter: 2023Q4

REPORT INFORMATION
  Report Type: Spontaneous
  Country: US (occurrence: None)
  Receive Date: 20231027
  Receipt Date: 20231027
  Transmission Date: 20240110
  Serious: No
  Sender: FDA-Public Use
  Company Number: None

PATIENT
  Age: 54 Year
  Sex: Male

DRUGS (1)
  1. HALOPERIDOL LACTATE [Suspect]
     Active Substance: HALOPERIDOL LACTATE
     Indication: Bipolar disorder
     Dosage: OTHER FREQUENCY : ONCE;?
     Route: 030
     Dates: end: 20230807

REACTIONS (2)
  - Bruxism [None]
  - Pain in jaw [None]
